FAERS Safety Report 8766861 (Version 2)
Quarter: 2013Q3

REPORT INFORMATION
  Report Type: Report from Study
  Country: JP (occurrence: JP)
  Receive Date: 20120904
  Receipt Date: 20130904
  Transmission Date: 20140515
  Serious: Yes (Hospitalization)
  Sender: FDA-Public Use
  Company Number: JP-VERTEX PHARMACEUTICAL INC.-AE-2012-011313

PATIENT
  Age: 65 Year
  Sex: Male

DRUGS (14)
  1. VX-950 (TELAPREVIR) [Suspect]
     Indication: CHRONIC HEPATITIS C
     Dosage: 2250 MG, QD
     Route: 048
     Dates: start: 20120207, end: 20120501
  2. REBETOL [Suspect]
     Indication: CHRONIC HEPATITIS C
     Dosage: 600 MG, QD
     Route: 048
     Dates: start: 20120207, end: 20120226
  3. REBETOL [Suspect]
     Dosage: 200 MG, QD
     Route: 048
     Dates: start: 20120227, end: 20120327
  4. REBETOL [Suspect]
     Dosage: 400 MG, QD
     Route: 048
     Dates: start: 20120328, end: 20120508
  5. REBETOL [Suspect]
     Dosage: 400 MG, QD
     Route: 048
     Dates: start: 20120523, end: 20120724
  6. REBETOL [Suspect]
     Dosage: 600 MG, QD
     Route: 048
     Dates: start: 20120725
  7. PEGINTRON [Suspect]
     Indication: CHRONIC HEPATITIS C
     Dosage: 1.5 ?G/KG, QW
     Route: 058
     Dates: start: 20120207, end: 20120508
  8. PEGINTRON [Suspect]
     Dosage: 1.5 ?G/KG, QW
     Route: 058
     Dates: start: 20120523
  9. GASTER [Concomitant]
     Dosage: 40 MG, QD
     Route: 048
     Dates: start: 20120207, end: 20120724
  10. CELESTAMINE [Concomitant]
     Dosage: 2 DF, QD
     Route: 048
     Dates: start: 20120207
  11. CELESTAMINE [Concomitant]
     Dosage: 2 DF, QD
     Route: 048
     Dates: start: 20120501
  12. LOXONIN [Concomitant]
     Dosage: 1 DF, PRN
     Route: 048
     Dates: start: 20120207
  13. LOXONIN [Concomitant]
     Dosage: 1 DF, QD
     Route: 048
     Dates: end: 20120724
  14. ZYLORIC [Concomitant]
     Dosage: 1 DF, QD
     Route: 048
     Dates: end: 20120508

REACTIONS (1)
  - Pyrexia [Recovered/Resolved]
